FAERS Safety Report 18944246 (Version 1)
Quarter: 2021Q1

REPORT INFORMATION
  Report Type: Spontaneous
  Country: US (occurrence: US)
  Receive Date: 20210225
  Receipt Date: 20210225
  Transmission Date: 20210420
  Serious: Yes (Death)
  Sender: FDA-Public Use
  Company Number: None

PATIENT
  Sex: Male

DRUGS (2)
  1. FENTANYL. [Suspect]
     Active Substance: FENTANYL
  2. SYNCHROMED II 683740 [Suspect]
     Active Substance: DEVICE

REACTIONS (2)
  - Accidental overdose [None]
  - Device defective [None]
